FAERS Safety Report 7454510-3 (Version None)
Quarter: 2011Q2

REPORT INFORMATION
  Report Type: 
  Country: None (occurrence: None)
  Receive Date: 20110503
  Receipt Date: 20110425
  Transmission Date: 20111010
  Serious: Yes (Other)
  Sender: FDA-Public Use
  Company Number: PHHY2011US30837

PATIENT
  Sex: Female

DRUGS (14)
  1. RECLAST [Suspect]
     Indication: OSTEOPOROSIS
     Dosage: 5 MG/100 ML YEARLY
     Route: 042
     Dates: start: 20110223
  2. FOLIC ACID [Concomitant]
     Dosage: 1 DF, UNK
     Dates: start: 20100723
  3. VOLTAREN EMULGEL ^GEIGY^ [Concomitant]
     Dosage: 4 G, PRN
  4. AMBIEN [Concomitant]
     Dosage: 1 DF, UNK
     Dates: start: 20110223
  5. BACLOFEN [Concomitant]
     Dosage: 3 DF, UNK
     Route: 048
  6. COUMADIN [Concomitant]
     Dosage: 1 DF, PRN
  7. COPAXONE [Concomitant]
     Dosage: 1 DF, UNK
     Route: 058
  8. VITAMIN D [Concomitant]
     Dosage: UNK
     Route: 048
     Dates: start: 20110223
  9. ALLEGRA [Concomitant]
     Dosage: 1 DF, PRN
     Dates: start: 20090713
  10. MS CONTIN [Concomitant]
  11. SONATA [Concomitant]
     Dosage: 2 DF, PRN
  12. KLONOPIN [Concomitant]
     Dosage: 3 DF, UNK
     Route: 048
     Dates: start: 20110223
  13. SYNTHROID [Concomitant]
     Dosage: 1 DF, QW
     Dates: start: 20100723
  14. CALCIUM [Concomitant]
     Dosage: UNK
     Route: 048
     Dates: start: 20110223

REACTIONS (5)
  - ARTHRALGIA [None]
  - PAIN IN EXTREMITY [None]
  - MEDIAL TIBIAL STRESS SYNDROME [None]
  - MUSCULOSKELETAL PAIN [None]
  - MUSCULAR WEAKNESS [None]
